FAERS Safety Report 21016452 (Version 1)
Quarter: 2022Q2

REPORT INFORMATION
  Report Type: Spontaneous
  Country: US (occurrence: None)
  Receive Date: 20220627
  Receipt Date: 20220627
  Transmission Date: 20220720
  Serious: Yes (Hospitalization)
  Sender: FDA-Public Use
  Company Number: None

PATIENT
  Age: 81 Year
  Sex: Male

DRUGS (1)
  1. AZTREONAM [Suspect]
     Active Substance: AZTREONAM
     Indication: Sepsis
     Dosage: FREQUENCY : ONCE;?
     Route: 042
     Dates: start: 20220421, end: 20220421

REACTIONS (5)
  - Drug hypersensitivity [None]
  - Anaphylactic reaction [None]
  - Blood pressure increased [None]
  - Stridor [None]
  - Respiratory distress [None]

NARRATIVE: CASE EVENT DATE: 20220421
